FAERS Safety Report 6675274-7 (Version None)
Quarter: 2010Q2

REPORT INFORMATION
  Report Type: 
  Country: None (occurrence: None)
  Receive Date: 20100409
  Receipt Date: 20091228
  Transmission Date: 20101027
  Serious: No
  Sender: FDA-Public Use
  Company Number: A0837169A

PATIENT
  Age: 53 Year
  Sex: Female

DRUGS (3)
  1. TYKERB [Suspect]
     Indication: DRUG USE FOR UNKNOWN INDICATION
     Dosage: 5TAB PER DAY
     Route: 048
     Dates: start: 20091125
  2. BACTRIM [Suspect]
     Route: 065
     Dates: start: 20090101, end: 20090101
  3. CIPROFLOXACIN [Suspect]
     Route: 065
     Dates: start: 20090101, end: 20090101

REACTIONS (6)
  - CHILLS [None]
  - DECREASED APPETITE [None]
  - DIARRHOEA [None]
  - FATIGUE [None]
  - NAUSEA [None]
  - WOUND INFECTION [None]
